FAERS Safety Report 7751817-7 (Version None)
Quarter: 2011Q3

REPORT INFORMATION
  Report Type: 
  Country: None (occurrence: None)
  Receive Date: 20110914
  Receipt Date: 20110914
  Transmission Date: 20111222
  Serious: Yes (Other)
  Sender: FDA-Public Use
  Company Number: None

PATIENT
  Age: 74 Year
  Sex: Female
  Weight: 47.6277 kg

DRUGS (1)
  1. CELEXA [Suspect]
     Indication: DEPRESSION
     Dosage: 20MG Q PM P.O.
     Route: 048
     Dates: start: 20110906, end: 20110909

REACTIONS (3)
  - HEADACHE [None]
  - MUSCULOSKELETAL STIFFNESS [None]
  - SEDATION [None]
